FAERS Safety Report 8531735-7 (Version None)
Quarter: 2012Q3

REPORT INFORMATION
  Report Type: 
  Country: None (occurrence: None)
  Receive Date: 20120723
  Receipt Date: 20120712
  Transmission Date: 20120928
  Serious: No
  Sender: FDA-Public Use
  Company Number: US-009507513-1207USA003630

PATIENT

DRUGS (3)
  1. REBETOL [Suspect]
  2. PEGASYS [Suspect]
  3. VICTRELIS [Suspect]
     Indication: HEPATITIS C
     Dosage: 800 MG, TID
     Route: 048
     Dates: start: 20120601

REACTIONS (1)
  - DRUG INEFFECTIVE [None]
